FAERS Safety Report 6519525-8 (Version None)
Quarter: 2009Q4

REPORT INFORMATION
  Report Type: 
  Country: None (occurrence: None)
  Receive Date: 20091228
  Receipt Date: 20091215
  Transmission Date: 20100525
  Serious: Yes (Other)
  Sender: FDA-Public Use
  Company Number: AU-PFIZER INC-2009291351

PATIENT
  Age: 14 Year
  Sex: Female

DRUGS (32)
  1. VFEND [Suspect]
     Indication: SCEDOSPORIUM INFECTION
     Dosage: 200 MG, 2X/DAY
     Route: 042
     Dates: start: 20090826
  2. VFEND [Suspect]
     Dosage: 7 MG/KG, 2X/DAY, 12HLY
  3. VFEND [Suspect]
     Dosage: 4 MG/KG, 2X/DAY
  4. AMPHOTERICINE B, LIPOSOME [Concomitant]
     Dosage: UNK
     Route: 042
     Dates: end: 20090825
  5. CEFTAZIDIME [Concomitant]
     Dosage: UNK
     Dates: end: 20090913
  6. CIPROFLOXACIN [Concomitant]
     Dosage: UNK
     Route: 042
     Dates: end: 20090828
  7. CIPROFLOXACIN [Concomitant]
     Dosage: 500 MG, 2X/DAY
     Route: 048
     Dates: end: 20090812
  8. EVENING PRIMROSE OIL [Concomitant]
     Dosage: 2000 MG, 2X/DAY
     Route: 048
  9. FENTANYL [Concomitant]
     Dosage: UNK
     Route: 042
     Dates: end: 20090830
  10. FENTANYL [Concomitant]
     Dosage: UNK
     Route: 062
     Dates: end: 20090912
  11. FILGRASTIM [Concomitant]
     Dosage: UNK
     Dates: end: 20090827
  12. TPN [Concomitant]
     Dosage: UNK
     Dates: end: 20090901
  13. HYDROCORTISONE [Concomitant]
     Dosage: 50 MG, AS NEEDED PRE-BLOOD AND PRE-AMBISOME
     Route: 042
     Dates: start: 20090818
  14. INSULIN NEUTRAL [Concomitant]
     Dosage: UNK
     Dates: end: 20090902
  15. METRONIDAZOLE [Concomitant]
     Dosage: UNK
     Dates: end: 20090910
  16. MIDAZOLAM [Concomitant]
     Dosage: UNK
     Dates: end: 20090831
  17. NORETHISTERONE [Concomitant]
     Dosage: UNK
     Dates: end: 20090904
  18. NYSTATIN [Concomitant]
     Dosage: UNK
     Dates: end: 20090915
  19. PANTOPRAZOLE [Concomitant]
     Dosage: 40 MG, 1X/DAY
     Dates: start: 20090821
  20. PARACETAMOL [Concomitant]
     Dosage: 1 G, 4X/DAY AS NEEDED
     Dates: start: 20090831
  21. PHOLCODINE LINCTUS [Concomitant]
     Dosage: UNK
     Dates: end: 20090827
  22. PHYTOMENADIONE [Concomitant]
     Dosage: 10 MG, 1X/DAY, MWF
     Route: 042
     Dates: start: 20090724
  23. PIPERACILLIN AND TAZOBACTAM [Concomitant]
     Dosage: UNK
     Dates: end: 20090908
  24. PROPOFOL [Concomitant]
     Dosage: UNK
     Dates: end: 20090830
  25. SALBUTAMOL [Concomitant]
     Dosage: 2.5 MG, EVERY 4 HRS, AS NEEDED
     Dates: start: 20090713
  26. TERBINAFINE [Concomitant]
     Dosage: 250 MG, 2X/DAY
     Dates: start: 20090829
  27. VALACICLOVIR [Concomitant]
     Dosage: 500 MG, 2X/DAY, EVERY 12 HOURS
     Dates: start: 20090714
  28. VANCOMYCIN [Concomitant]
     Dosage: 750 MG, 2X/DAY
     Route: 042
     Dates: start: 20090723
  29. VANCOMYCIN [Concomitant]
     Dosage: 1 G, 3X/DAY
     Route: 042
     Dates: start: 20090726
  30. VANCOMYCIN [Concomitant]
     Dosage: 1 G, 2X/DAY
     Dates: start: 20090726
  31. VANCOMYCIN [Concomitant]
     Dosage: 1.5 G, 3X/DAY
     Route: 042
     Dates: start: 20090728, end: 20090831
  32. XYLOMETAZOLINE [Concomitant]
     Dosage: UNK
     Dates: end: 20090828

REACTIONS (1)
  - DRUG LEVEL BELOW THERAPEUTIC [None]
